FAERS Safety Report 6220037-X (Version None)
Quarter: 2009Q2

REPORT INFORMATION
  Report Type: 
  Country: None (occurrence: None)
  Receive Date: 20090609
  Receipt Date: 20090527
  Transmission Date: 20091009
  Serious: Yes (Other)
  Sender: FDA-Public Use
  Company Number: PHHY2009JP20721

PATIENT
  Age: 66 Year
  Sex: Male

DRUGS (2)
  1. DIOVAN [Suspect]
     Indication: HYPERTENSION
     Dosage: 80 MG, QD
     Route: 048
     Dates: start: 20080101, end: 20090401
  2. FLUITRAN [Concomitant]
     Dosage: 2 MG, UNK
     Route: 048
     Dates: start: 20080101

REACTIONS (1)
  - BLOOD CREATINE PHOSPHOKINASE INCREASED [None]
